FAERS Safety Report 19868555 (Version 1)
Quarter: 2021Q3

REPORT INFORMATION
  Report Type: Spontaneous
  Country: CN (occurrence: CN)
  Receive Date: 20210921
  Receipt Date: 20210921
  Transmission Date: 20211014
  Serious: Yes (Other)
  Sender: FDA-Public Use
  Company Number: CN-BAXTER-2021BAX029163

PATIENT
  Sex: Female
  Weight: 38 kg

DRUGS (6)
  1. ENDOXAN [Suspect]
     Active Substance: CYCLOPHOSPHAMIDE
     Dosage: DOSE REINTRODUCED.
     Route: 041
  2. ENDOXAN [Suspect]
     Active Substance: CYCLOPHOSPHAMIDE
     Indication: DIFFUSE LARGE B-CELL LYMPHOMA
     Dosage: CYCLOPHOSPHAMIDE FOR INJECTION 970MG + 0.9% NS100ML WAS PUMPED IN ST
     Route: 041
     Dates: start: 20210805, end: 20210805
  3. 0.9% SODIUM CHLORIDE INJECTION [Suspect]
     Active Substance: SODIUM CHLORIDE
     Dosage: DOXORUBICIN FOR INJECTION 50MG + 0.9% NS100ML WAS PUMPED INTO ST
     Dates: start: 20210805, end: 20210805
  4. 0.9% SODIUM CHLORIDE INJECTION [Suspect]
     Active Substance: SODIUM CHLORIDE
     Indication: MEDICATION DILUTION
     Dosage: CYCLOPHOSPHAMIDE FOR INJECTION 970MG + 0.9% NS100ML WAS PUMPED IN ST
     Dates: start: 20210805, end: 20210805
  5. DOXORUBICIN [Suspect]
     Active Substance: DOXORUBICIN
     Dosage: DOSE REINTRODUCED.
     Route: 041
  6. DOXORUBICIN [Suspect]
     Active Substance: DOXORUBICIN
     Indication: DIFFUSE LARGE B-CELL LYMPHOMA
     Dosage: DOXORUBICIN FOR INJECTION 50MG + 0.9% NS100ML WAS PUMPED INTO ST
     Route: 041
     Dates: start: 20210805, end: 20210805

REACTIONS (1)
  - Myelosuppression [Recovering/Resolving]

NARRATIVE: CASE EVENT DATE: 20210805
